FAERS Safety Report 6584940-3 (Version None)
Quarter: 2010Q1

REPORT INFORMATION
  Report Type: 
  Country: None (occurrence: None)
  Receive Date: 20100217
  Receipt Date: 20100209
  Transmission Date: 20100710
  Serious: Yes (Hospitalization)
  Sender: FDA-Public Use
  Company Number: CHPA2010DE02005

PATIENT
  Sex: Female
  Weight: 63 kg

DRUGS (3)
  1. SCOPOLAMINE [Suspect]
     Indication: PROPHYLAXIS AGAINST MOTION SICKNESS
     Dosage: UNK, UNK
     Route: 062
     Dates: start: 20100107, end: 20100110
  2. SCOPOLAMINE [Suspect]
     Dosage: UNK, UNK
     Route: 062
     Dates: start: 20100114, end: 20100116
  3. SIMVASTATIN [Concomitant]
     Dosage: 1 DF, QHS

REACTIONS (5)
  - MALAISE [None]
  - PRESBYOPIA [None]
  - PUPILS UNEQUAL [None]
  - TOBACCO ABUSE [None]
  - VISION BLURRED [None]
